FAERS Safety Report 9454560 (Version 1)
Quarter: 2013Q3

REPORT INFORMATION
  Report Type: Spontaneous
  Country: US (occurrence: None)
  Receive Date: 20130808
  Receipt Date: 20130808
  Transmission Date: 20140515
  Serious: No
  Sender: FDA-Public Use
  Company Number: CS130218020

PATIENT
  Sex: Female

DRUGS (1)
  1. PRAMOSONE [Suspect]
     Indication: RASH PRURITIC
     Dosage: ARMS, CHEST

REACTIONS (2)
  - Rash erythematous [None]
  - Pruritus [None]
